FAERS Safety Report 7346108-2 (Version None)
Quarter: 2011Q1

REPORT INFORMATION
  Report Type: 
  Country: None (occurrence: None)
  Receive Date: 20110311
  Receipt Date: 20100124
  Transmission Date: 20110831
  Serious: Yes (Death, Other)
  Sender: FDA-Public Use
  Company Number: US-BAYER-201012041NA

PATIENT
  Sex: Female
  Weight: 13.152 kg

DRUGS (20)
  1. TRASYLOL [Suspect]
     Indication: CARDIAC OPERATION
     Dosage: 200 ML TOTAL GIVEN DURING PROCEDURE [150 ML GIVEN AT 1245, 50 ML GIVEN AT 1430]
     Route: 042
     Dates: start: 20050722, end: 20050722
  2. SPIRONOLACTONE [Concomitant]
     Dosage: 2.6 ML, BID
  3. EPINEPHRINE [Concomitant]
     Dosage: 7.5 MCG
     Route: 042
     Dates: start: 20050722, end: 20050722
  4. HEPARIN [Concomitant]
     Dosage: 3100 U, UNK
     Route: 042
     Dates: start: 20050722, end: 20050722
  5. PROTAMINE SULFATE [Concomitant]
     Dosage: 40 MG, UNK
     Route: 042
     Dates: start: 20050722, end: 20050722
  6. LASIX [Concomitant]
     Dosage: 20 MG, BID
  7. CALCIUM CHLORIDE [Concomitant]
     Dosage: 315 MG, UNK
     Route: 042
     Dates: start: 20050722, end: 20050722
  8. DIGOXIN [Concomitant]
     Dosage: 125 MCG TWICE DAILY
  9. RED BLOOD CELLS [Concomitant]
     Indication: VASCULAR GRAFT
     Dosage: 60 ML, UNK
     Dates: start: 20050722, end: 20050722
  10. ENALAPRIL MALEATE [Concomitant]
     Dosage: 10-25 MG TWICE DAILY
  11. PANCURONIUM BROMIDE [Concomitant]
     Dosage: 5 MG, UNK
     Route: 042
     Dates: start: 20050722, end: 20050722
  12. KEFZOL [Concomitant]
     Dosage: 938 MG, UNK
     Route: 042
     Dates: start: 20050722, end: 20050722
  13. MIDAZOLAM [Concomitant]
     Dosage: 4 MG, UNK
     Route: 042
     Dates: start: 20050722, end: 20050722
  14. PROPRANOLOL [Concomitant]
     Dosage: 1 ML, TID
  15. FENTANYL [Concomitant]
     Dosage: 1000 MCG
     Route: 042
     Dates: start: 20050722, end: 20050722
  16. ACETYLSALICYLIC ACID (} 100 MG, FAST RELEASE) [Concomitant]
     Dosage: 81 MG, QD
  17. KLONOPIN [Concomitant]
     Dosage: 0.25 MG, BID
  18. KEPPRA [Concomitant]
     Dosage: 2 ML, BID
  19. PHENYLEPHRINE [Concomitant]
     Dosage: 60 MCG
     Route: 042
     Dates: start: 20050722, end: 20050722
  20. VASOPRESSIN [Concomitant]
     Dosage: UNK
     Route: 042
     Dates: start: 20050722, end: 20050722

REACTIONS (12)
  - MULTI-ORGAN FAILURE [None]
  - INJURY [None]
  - RENAL IMPAIRMENT [None]
  - RENAL INJURY [None]
  - PAIN [None]
  - UNEVALUABLE EVENT [None]
  - RENAL FAILURE [None]
  - STRESS [None]
  - ANXIETY [None]
  - DEATH [None]
  - EMOTIONAL DISTRESS [None]
  - FEAR [None]
